FAERS Safety Report 5253067-5 (Version None)
Quarter: 2007Q1

REPORT INFORMATION
  Report Type: 
  Country: None (occurrence: None)
  Receive Date: 20061201
  Receipt Date: 20060825
  Transmission Date: 20070707
  Serious: No
  Sender: FDA-Public Use
  Company Number: 2006PV020135

PATIENT
  Age: 62 Year
  Sex: Female

DRUGS (4)
  1. BYETTA [Suspect]
     Indication: DIABETES MELLITUS NON-INSULIN-DEPENDENT
     Dosage: 5 MCG; BID; SC
     Route: 058
     Dates: start: 20060601, end: 20060604
  2. ACTOS [Concomitant]
  3. AMARYL [Concomitant]
  4. COREG [Concomitant]

REACTIONS (8)
  - ABDOMINAL PAIN UPPER [None]
  - ARTHRALGIA [None]
  - CONSTIPATION [None]
  - DERMAL CYST [None]
  - HYPERSENSITIVITY [None]
  - INJECTION SITE MASS [None]
  - MUSCLE SPASMS [None]
  - UNEVALUABLE EVENT [None]
